FAERS Safety Report 23756661 (Version 1)
Quarter: 2024Q2

REPORT INFORMATION
  Report Type: Spontaneous
  Country: FR (occurrence: FR)
  Receive Date: 20240418
  Receipt Date: 20240418
  Transmission Date: 20240716
  Serious: Yes (Other)
  Sender: FDA-Public Use
  Company Number: FR-BRISTOL-MYERS SQUIBB COMPANY-2024-057449

PATIENT
  Age: 55 Year
  Sex: Male

DRUGS (7)
  1. NIVOLUMAB [Suspect]
     Active Substance: NIVOLUMAB
     Indication: Metastatic malignant melanoma
     Dosage: C1
     Dates: start: 20230524
  2. NIVOLUMAB [Suspect]
     Active Substance: NIVOLUMAB
     Dosage: C2
     Dates: start: 20230613
  3. NIVOLUMAB [Suspect]
     Active Substance: NIVOLUMAB
     Dosage: C3
     Dates: start: 20230704
  4. NIVOLUMAB [Suspect]
     Active Substance: NIVOLUMAB
     Dates: start: 20230913
  5. IPILIMUMAB [Suspect]
     Active Substance: IPILIMUMAB
     Indication: Metastatic malignant melanoma
     Dosage: C1
     Dates: start: 20230524
  6. IPILIMUMAB [Suspect]
     Active Substance: IPILIMUMAB
     Dosage: C2
     Dates: start: 20230613
  7. IPILIMUMAB [Suspect]
     Active Substance: IPILIMUMAB
     Dosage: C3
     Dates: start: 20230704

REACTIONS (4)
  - Immune-mediated dermatitis [Unknown]
  - Facial paralysis [Recovered/Resolved]
  - Immune-mediated hypophysitis [Unknown]
  - Vitiligo [Unknown]

NARRATIVE: CASE EVENT DATE: 20230101
